FAERS Safety Report 12387355 (Version 1)
Quarter: 2016Q2

REPORT INFORMATION
  Report Type: Spontaneous
  Country: US (occurrence: US)
  Receive Date: 20160519
  Receipt Date: 20160519
  Transmission Date: 20160815
  Serious: No
  Sender: FDA-Public Use
  Company Number: GXBR2015US002841

PATIENT
  Sex: Male

DRUGS (1)
  1. SOLARAZE [Suspect]
     Active Substance: DICLOFENAC SODIUM
     Indication: PRECANCEROUS SKIN LESION
     Dosage: UNK DF, UNK
     Route: 061

REACTIONS (2)
  - Dry skin [Unknown]
  - Skin exfoliation [Unknown]
